FAERS Safety Report 15059289 (Version 1)
Quarter: 2018Q2

REPORT INFORMATION
  Report Type: Spontaneous
  Country: FR (occurrence: FR)
  Receive Date: 20180625
  Receipt Date: 20180625
  Transmission Date: 20180711
  Serious: Yes (Hospitalization)
  Sender: FDA-Public Use
  Company Number: FR-NORTHSTAR HEALTHCARE HOLDINGS-FR-2018NSR000106

PATIENT

DRUGS (1)
  1. BACLOFEN. [Suspect]
     Active Substance: BACLOFEN
     Indication: ALCOHOL WITHDRAWAL SYNDROME
     Dosage: UNK

REACTIONS (2)
  - Delirium [Unknown]
  - Drug withdrawal syndrome [Unknown]
